FAERS Safety Report 26034653 (Version 1)
Quarter: 2025Q4

REPORT INFORMATION
  Report Type: Report from Study
  Country: US (occurrence: US)
  Receive Date: 20251112
  Receipt Date: 20251112
  Transmission Date: 20260117
  Serious: Yes (Hospitalization)
  Sender: MYLAN
  Company Number: US-MYLANLABS-2025M1094090

PATIENT
  Sex: Female

DRUGS (8)
  1. ATORVASTATIN [Interacting]
     Active Substance: ATORVASTATIN
     Indication: Product used for unknown indication
     Dosage: UNK
  2. ATORVASTATIN [Interacting]
     Active Substance: ATORVASTATIN
     Dosage: UNK
     Route: 065
  3. ATORVASTATIN [Interacting]
     Active Substance: ATORVASTATIN
     Dosage: UNK
     Route: 065
  4. ATORVASTATIN [Interacting]
     Active Substance: ATORVASTATIN
     Dosage: UNK
  5. IBRANCE [Interacting]
     Active Substance: PALBOCICLIB
     Indication: Breast cancer female
     Dosage: UNK
  6. IBRANCE [Interacting]
     Active Substance: PALBOCICLIB
     Dosage: UNK
     Route: 065
  7. IBRANCE [Interacting]
     Active Substance: PALBOCICLIB
     Dosage: UNK
     Route: 065
  8. IBRANCE [Interacting]
     Active Substance: PALBOCICLIB
     Dosage: UNK

REACTIONS (6)
  - Fall [Unknown]
  - Gait disturbance [Not Recovered/Not Resolved]
  - Myalgia [Unknown]
  - Muscle fatigue [Unknown]
  - Muscular weakness [Unknown]
  - Drug interaction [Unknown]
